FAERS Safety Report 4337104-8 (Version None)
Quarter: 2004Q1

REPORT INFORMATION
  Report Type: 
  Country: None (occurrence: None)
  Receive Date: 20040329
  Receipt Date: 20040115
  Transmission Date: 20041129
  Serious: No
  Sender: FDA-Public Use
  Company Number: USA040156695

PATIENT
  Age: 45 Year
  Sex: Female

DRUGS (2)
  1. STRATTERA [Suspect]
     Indication: FATIGUE
     Dosage: 10 MG/DAY
     Route: 048
     Dates: start: 20031229
  2. TYROID [Concomitant]

REACTIONS (2)
  - DEPRESSION [None]
  - HUNGER [None]
